FAERS Safety Report 23232684 (Version 1)
Quarter: 2023Q4

REPORT INFORMATION
  Report Type: Report from Study
  Country: US (occurrence: US)
  Receive Date: 20231128
  Receipt Date: 20231128
  Transmission Date: 20240110
  Serious: Yes (Hospitalization, Other)
  Sender: FDA-Public Use
  Company Number: US-ABBVIE-5506670

PATIENT
  Sex: Female
  Weight: 60 kg

DRUGS (2)
  1. ARMOUR THYROID [Suspect]
     Active Substance: THYROID, PORCINE
     Indication: Hypothyroidism
     Dosage: 60 MILLIGRAM?START DATE: OVER 2 YEARS AGO
     Route: 048
  2. ROSUVASTATIN CALCIUM [Concomitant]
     Active Substance: ROSUVASTATIN CALCIUM
     Indication: Blood cholesterol

REACTIONS (11)
  - Fall [Recovered/Resolved]
  - Rotator cuff syndrome [Recovered/Resolved]
  - Wrist fracture [Recovered/Resolved]
  - Pain [Not Recovered/Not Resolved]
  - Inflammation [Recovered/Resolved]
  - Injury [Recovered/Resolved]
  - Muscle injury [Recovered/Resolved]
  - Nerve injury [Not Recovered/Not Resolved]
  - Spinal column injury [Recovered/Resolved]
  - Neck injury [Recovered/Resolved]
  - Limb injury [Recovered/Resolved]

NARRATIVE: CASE EVENT DATE: 20190101
